FAERS Safety Report 14384139 (Version 2)
Quarter: 2018Q1

REPORT INFORMATION
  Report Type: Report from Study
  Country: None (occurrence: US)
  Receive Date: 20180115
  Receipt Date: 20180212
  Transmission Date: 20180509
  Serious: Yes (Hospitalization, Other)
  Sender: FDA-Public Use
  Company Number: US-ABBVIE-18K-163-2218959-00

PATIENT
  Age: 53 Year
  Sex: Female

DRUGS (1)
  1. HUMIRA [Suspect]
     Active Substance: ADALIMUMAB
     Indication: CROHN^S DISEASE
     Route: 058
     Dates: start: 20170908

REACTIONS (4)
  - Nonspecific reaction [Not Recovered/Not Resolved]
  - Intestinal stenosis [Unknown]
  - Crohn^s disease [Unknown]
  - Drug specific antibody [Unknown]

NARRATIVE: CASE EVENT DATE: 2017
